FAERS Safety Report 15951290 (Version 1)
Quarter: 2019Q1

REPORT INFORMATION
  Report Type: Report from Study
  Country: US (occurrence: US)
  Receive Date: 20190212
  Receipt Date: 20190212
  Transmission Date: 20190417
  Serious: No
  Sender: FDA-Public Use
  Company Number: US-INCYTE CORPORATION-2019IN000009

PATIENT

DRUGS (3)
  1. BABY ASPIRIN [Concomitant]
     Active Substance: ASPIRIN
     Indication: PRODUCT USED FOR UNKNOWN INDICATION
     Route: 065
  2. LIPITOR [Concomitant]
     Active Substance: ATORVASTATIN CALCIUM
     Indication: PRODUCT USED FOR UNKNOWN INDICATION
     Route: 065
  3. JAKAFI [Suspect]
     Active Substance: RUXOLITINIB
     Indication: BLOOD VISCOSITY INCREASED
     Dosage: 5 MG, BID
     Route: 048

REACTIONS (7)
  - Off label use [Not Recovered/Not Resolved]
  - Balance disorder [Not Recovered/Not Resolved]
  - Burning sensation [Not Recovered/Not Resolved]
  - Somnolence [Not Recovered/Not Resolved]
  - Nightmare [Not Recovered/Not Resolved]
  - Ingrowing nail [Not Recovered/Not Resolved]
  - Dizziness [Not Recovered/Not Resolved]

NARRATIVE: CASE EVENT DATE: 201812
